FAERS Safety Report 4363937-8 (Version None)
Quarter: 2004Q2

REPORT INFORMATION
  Report Type: 
  Country: None (occurrence: None)
  Receive Date: 20040520
  Receipt Date: 20031030
  Transmission Date: 20050107
  Serious: No
  Sender: FDA-Public Use
  Company Number: 2003-06282

PATIENT
  Sex: Male

DRUGS (1)
  1. HEPSERA [Suspect]
     Indication: HEPATITIS B

REACTIONS (1)
  - SPONTANEOUS PENILE ERECTION [None]
